FAERS Safety Report 10233131 (Version 2)
Quarter: 2014Q3

REPORT INFORMATION
  Report Type: Spontaneous
  Country: US (occurrence: US)
  Receive Date: 20140612
  Receipt Date: 20140721
  Transmission Date: 20150326
  Serious: Yes (Death, Hospitalization)
  Sender: FDA-Public Use
  Company Number: US-SA-2014SA074670

PATIENT
  Age: 57 Year
  Sex: Male
  Weight: 80 kg

DRUGS (3)
  1. FABRAZYME [Suspect]
     Active Substance: AGALSIDASE BETA
     Indication: FABRY^S DISEASE
     Dosage: THE LOT NUMBERS MENTIONED PERTAIN TO THE LATEST INFUSION ON 22-MAY-2014; FZ, 2@35 2@5, INF: 7/10
     Route: 042
     Dates: start: 20051019
  2. FABRAZYME [Suspect]
     Active Substance: AGALSIDASE BETA
     Indication: FABRY^S DISEASE
     Dosage: THE LOT NUMBERS MENTIONED PERTAIN TO THE LATEST INFUSION ON 22-MAY-2014; FZ, 2@35 2@5, INF: 7/10
     Route: 042
     Dates: start: 20051019
  3. LASIX [Concomitant]
     Active Substance: FUROSEMIDE

REACTIONS (4)
  - Death [Fatal]
  - Dyspnoea [Unknown]
  - Asthenia [Unknown]
  - Myocardial infarction [Unknown]

NARRATIVE: CASE EVENT DATE: 20140530
